FAERS Safety Report 11851997 (Version 5)
Quarter: 2016Q1

REPORT INFORMATION
  Report Type: Spontaneous
  Country: DE (occurrence: DE)
  Receive Date: 20151218
  Receipt Date: 20160223
  Transmission Date: 20160526
  Serious: Yes (Disabling, Other)
  Sender: FDA-Public Use
  Company Number: DE-BAYER-2015-492057

PATIENT
  Sex: Female

DRUGS (4)
  1. GADOVIST [Suspect]
     Active Substance: GADOBUTROL
     Indication: NUCLEAR MAGNETIC RESONANCE IMAGING
     Dosage: 12 ML, ONCE
     Dates: start: 199306
  2. ULTRAVIST [Suspect]
     Active Substance: IOPROMIDE
     Indication: COMPUTERISED TOMOGRAM ABDOMEN
     Dosage: UNK
     Dates: start: 199306
  3. ULTRAVIST [Suspect]
     Active Substance: IOPROMIDE
     Indication: ILEUS
  4. ULTRAVIST [Suspect]
     Active Substance: IOPROMIDE
     Indication: NUCLEAR MAGNETIC RESONANCE IMAGING ABDOMINAL
     Dosage: UNK
     Dates: start: 199306

REACTIONS (13)
  - Musculoskeletal pain [Not Recovered/Not Resolved]
  - Fatigue [Not Recovered/Not Resolved]
  - Nephrogenic systemic fibrosis [Not Recovered/Not Resolved]
  - Arrhythmia [Not Recovered/Not Resolved]
  - Apathy [Not Recovered/Not Resolved]
  - Sleep disorder [Not Recovered/Not Resolved]
  - Temperature intolerance [Not Recovered/Not Resolved]
  - Arthralgia [Not Recovered/Not Resolved]
  - Joint stiffness [Not Recovered/Not Resolved]
  - Asthenia [Not Recovered/Not Resolved]
  - Hot flush [Not Recovered/Not Resolved]
  - Spinal pain [Not Recovered/Not Resolved]
  - Joint range of motion decreased [Not Recovered/Not Resolved]

NARRATIVE: CASE EVENT DATE: 199306
